FAERS Safety Report 13475694 (Version 1)
Quarter: 2017Q2

REPORT INFORMATION
  Report Type: Spontaneous
  Country: US (occurrence: US)
  Receive Date: 20170425
  Receipt Date: 20170425
  Transmission Date: 20170830
  Serious: Yes (Other)
  Sender: FDA-Public Use
  Company Number: US-MYLANLABS-2017M1020613

PATIENT

DRUGS (1)
  1. INDAPAMIDE TABLETS, USP [Suspect]
     Active Substance: INDAPAMIDE
     Indication: CALCIUM DEFICIENCY
     Dosage: 2.5 MG, QD
     Route: 048
     Dates: end: 20170328

REACTIONS (3)
  - Reaction to drug excipients [Recovered/Resolved]
  - Hypersensitivity [Recovered/Resolved]
  - Loss of consciousness [Recovered/Resolved]

NARRATIVE: CASE EVENT DATE: 201702
